FAERS Safety Report 9868460 (Version 1)
Quarter: 2014Q1

REPORT INFORMATION
  Report Type: Spontaneous
  Country: US (occurrence: US)
  Receive Date: 20140204
  Receipt Date: 20140204
  Transmission Date: 20141002
  Serious: Yes (Hospitalization)
  Sender: FDA-Public Use
  Company Number: US-B.I. PHARMACEUTICALS,INC./RIDGEFIELD-2014-BI-04753BP

PATIENT
  Age: 80 Year
  Sex: Female
  Weight: 68 kg

DRUGS (3)
  1. PRADAXA [Suspect]
     Indication: ATRIAL FIBRILLATION
     Dosage: 300 MG
     Route: 048
     Dates: start: 2012, end: 2013
  2. UNSPECIFIED THYROID MEDICATION [Concomitant]
     Indication: HYPOTHYROIDISM
  3. UNSPECIFIED ANTIHYPERTENSIVE [Concomitant]
     Indication: HYPERTENSION

REACTIONS (1)
  - Gastrointestinal haemorrhage [Recovered/Resolved]
